FAERS Safety Report 13902175 (Version 1)
Quarter: 2017Q3

REPORT INFORMATION
  Report Type: Spontaneous
  Country: US (occurrence: US)
  Receive Date: 20170824
  Receipt Date: 20170824
  Transmission Date: 20171127
  Serious: No
  Sender: FDA-Public Use
  Company Number: US-ROCHE-1130072

PATIENT
  Age: 36 Year
  Sex: Female

DRUGS (17)
  1. LEUCOVORIN. [Concomitant]
     Active Substance: LEUCOVORIN
     Route: 065
  2. ZOFRAN [Concomitant]
     Active Substance: ONDANSETRON HYDROCHLORIDE
     Indication: VOMITING
  3. COUMADIN [Concomitant]
     Active Substance: WARFARIN SODIUM
     Route: 065
  4. NAVELBINE [Concomitant]
     Active Substance: VINORELBINE TARTRATE
  5. 5-FU [Concomitant]
     Active Substance: FLUOROURACIL
     Route: 065
     Dates: start: 19971204
  6. COMPAZINE [Concomitant]
     Active Substance: PROCHLORPERAZINE MALEATE
     Indication: VOMITING
  7. ZOFRAN [Concomitant]
     Active Substance: ONDANSETRON HYDROCHLORIDE
     Indication: NAUSEA
     Dosage: AS NEEDED
     Route: 065
  8. BENADRYL [Concomitant]
     Active Substance: DIPHENHYDRAMINE HYDROCHLORIDE
     Indication: NAUSEA
     Dosage: AS NEEDED
     Route: 065
  9. BENADRYL [Concomitant]
     Active Substance: DIPHENHYDRAMINE HYDROCHLORIDE
     Indication: VOMITING
  10. PREVACID [Concomitant]
     Active Substance: LANSOPRAZOLE
     Route: 065
  11. HERCEPTIN [Suspect]
     Active Substance: TRASTUZUMAB
     Indication: BREAST CANCER METASTATIC
     Route: 065
     Dates: start: 19971224
  12. TEMAZEPAM. [Concomitant]
     Active Substance: TEMAZEPAM
     Dosage: AT BEDTIME, AS NEEDED
     Route: 065
  13. TAXOL [Concomitant]
     Active Substance: PACLITAXEL
     Route: 065
  14. COMPAZINE [Concomitant]
     Active Substance: PROCHLORPERAZINE MALEATE
     Indication: NAUSEA
     Dosage: AS NEEDED
     Route: 065
  15. TAXOL [Concomitant]
     Active Substance: PACLITAXEL
     Dosage: THREE HOUR INFUSIONS, THEN FOUR DAY INFUSIONS
     Route: 065
     Dates: start: 19971204
  16. LEUCOVORIN. [Concomitant]
     Active Substance: LEUCOVORIN
     Route: 065
     Dates: start: 19971204
  17. PREVACID [Concomitant]
     Active Substance: LANSOPRAZOLE
     Route: 065

REACTIONS (5)
  - Urinary tract infection [Unknown]
  - Bacterial sepsis [Unknown]
  - Drug hypersensitivity [Unknown]
  - Sinusitis [Recovered/Resolved]
  - Headache [Recovered/Resolved]

NARRATIVE: CASE EVENT DATE: 199803
